FAERS Safety Report 8478592-5 (Version None)
Quarter: 2012Q2

REPORT INFORMATION
  Report Type: 
  Country: None (occurrence: None)
  Receive Date: 20120629
  Receipt Date: 20120621
  Transmission Date: 20120825
  Serious: Yes (Other)
  Sender: FDA-Public Use
  Company Number: PHFR2012GB000641

PATIENT
  Sex: Female

DRUGS (5)
  1. MIRTAZAPINE [Suspect]
     Indication: DEPRESSIVE SYMPTOM
     Dosage: 45 MG, UNK
     Route: 048
     Dates: start: 20060101, end: 20120121
  2. CLOZARIL [Suspect]
     Indication: SCHIZOPHRENIA
     Dosage: 650 MG, UNK
     Route: 048
     Dates: start: 20060814, end: 20120109
  3. TOPIRAMATE [Suspect]
     Indication: PSYCHOTIC DISORDER
     Dosage: 300 MG, UNK
     Route: 048
     Dates: start: 20070101, end: 20120121
  4. CLOZARIL [Suspect]
     Dosage: 75 MG, UNK
     Dates: start: 20120112, end: 20120117
  5. CLOZARIL [Suspect]

REACTIONS (10)
  - TOOTHACHE [None]
  - INJURY [None]
  - PLATELET COUNT DECREASED [None]
  - WHITE BLOOD CELL COUNT DECREASED [None]
  - ROAD TRAFFIC ACCIDENT [None]
  - NEUTROPENIA [None]
  - TOOTH INFECTION [None]
  - SCRATCH [None]
  - NEUTROPHIL COUNT DECREASED [None]
  - EOSINOPHIL COUNT DECREASED [None]
